FAERS Safety Report 7557473-5 (Version None)
Quarter: 2011Q2

REPORT INFORMATION
  Report Type: 
  Country: None (occurrence: None)
  Receive Date: 20110620
  Receipt Date: 20110607
  Transmission Date: 20111010
  Serious: Yes (Life-Threatening, Hospitalization, Other)
  Sender: FDA-Public Use
  Company Number: US-ROCHE-782745

PATIENT
  Sex: Female

DRUGS (7)
  1. PACLITAXEL [Suspect]
     Dosage: 135 MG/M2 OVER 3 HRS ON DAY 1 OF CYCLE 1.
     Route: 042
     Dates: start: 20100804
  2. PACLITAXEL [Suspect]
     Dosage: CYCLE 2 CHEMOTHERAPY
     Route: 042
  3. CISPLATIN [Suspect]
     Dosage: 50 MG/M2 ON DAY 2 OF CYCLE 1.
     Route: 042
     Dates: start: 20100804
  4. CISPLATIN [Suspect]
     Dosage: CYCLE 2 CHEMOTHERAPY
     Route: 042
  5. BEVACIZUMAB [Suspect]
     Dosage: CYCLE 2 CHEMOTHERAPY
     Route: 042
     Dates: start: 20100825
  6. FONDAPARINUX SODIUM [Suspect]
     Indication: DEEP VEIN THROMBOSIS
     Dosage: DOSE AND FREQUENCY: NOT REPORTED.
     Route: 065
     Dates: end: 20100913
  7. BEVACIZUMAB [Suspect]
     Dosage: 15 MG/KG ON DAY 2 OF CYCLE 1.
     Route: 042
     Dates: start: 20100804

REACTIONS (5)
  - WHITE BLOOD CELL COUNT DECREASED [None]
  - NEUTROPHIL COUNT DECREASED [None]
  - PLATELET COUNT DECREASED [None]
  - HAEMOGLOBIN DECREASED [None]
  - THROMBOSIS [None]
